FAERS Safety Report 10966804 (Version 1)
Quarter: 2015Q1

REPORT INFORMATION
  Report Type: Spontaneous
  Country: US (occurrence: None)
  Receive Date: 20150226
  Receipt Date: 20150226
  Transmission Date: 20150721
  Serious: No
  Sender: FDA-Public Use
  Company Number: TPA2010A02725

PATIENT
  Age: 51 Year
  Sex: Female
  Weight: 155.58 kg

DRUGS (1)
  1. ULORIC [Suspect]
     Active Substance: FEBUXOSTAT
     Indication: GOUT
     Dosage: 1 IN 1 D
     Route: 048
     Dates: start: 20100501

REACTIONS (1)
  - VIIth nerve paralysis [None]

NARRATIVE: CASE EVENT DATE: 20100506
